FAERS Safety Report 6925488-3 (Version None)
Quarter: 2010Q3

REPORT INFORMATION
  Report Type: 
  Country: None (occurrence: None)
  Receive Date: 20100816
  Receipt Date: 20100809
  Transmission Date: 20110219
  Serious: Yes (Hospitalization)
  Sender: FDA-Public Use
  Company Number: AR-ROCHE-718221

PATIENT
  Sex: Female

DRUGS (2)
  1. AVASTIN [Suspect]
     Indication: RENAL CANCER
     Dosage: DOSE, FORM AND FREQUENCY: NOT REPORTED.
     Route: 042
     Dates: start: 20080101, end: 20100701
  2. INTERFERON [Concomitant]
     Dosage: REPORTED AS INTERFERON, DOSE, FORM AND FREQUENCY: NOT REPORTED.
     Route: 065
     Dates: start: 20080101, end: 20100201

REACTIONS (1)
  - MENTAL DISORDER [None]
